FAERS Safety Report 4788696-6 (Version None)
Quarter: 2005Q3

REPORT INFORMATION
  Report Type: 
  Country: None (occurrence: None)
  Receive Date: 20050915
  Receipt Date: 20050712
  Transmission Date: 20060218
  Serious: No
  Sender: FDA-Public Use
  Company Number: BDI-007361

PATIENT
  Age: 33 Year
  Sex: Male
  Weight: 95 kg

DRUGS (2)
  1. MULTIHANCE [Suspect]
     Indication: DIZZINESS
     Dosage: 20 ML ONCE IV
     Route: 042
     Dates: start: 20050712, end: 20050712
  2. MULTIHANCE [Suspect]
     Indication: HEADACHE
     Dosage: 20 ML ONCE IV
     Route: 042
     Dates: start: 20050712, end: 20050712

REACTIONS (5)
  - DYSPHONIA [None]
  - DYSPNOEA [None]
  - EYE SWELLING [None]
  - LACRIMATION INCREASED [None]
  - OCULAR HYPERAEMIA [None]
